FAERS Safety Report 9289267 (Version 1)
Quarter: 2013Q2

REPORT INFORMATION
  Report Type: Spontaneous
  Country: US (occurrence: US)
  Receive Date: 20130514
  Receipt Date: 20130514
  Transmission Date: 20140414
  Serious: No
  Sender: FDA-Public Use
  Company Number: US-ABBOTT-12P-163-0941798-00

PATIENT
  Sex: 0

DRUGS (1)
  1. PROMETRIUM [Suspect]
     Indication: PREMENSTRUAL SYNDROME

REACTIONS (5)
  - Unevaluable event [Not Recovered/Not Resolved]
  - Off label use [None]
  - Menstrual disorder [Unknown]
  - Anovulatory cycle [Not Recovered/Not Resolved]
  - Menstrual disorder [Not Recovered/Not Resolved]
